FAERS Safety Report 5017269-5 (Version None)
Quarter: 2006Q2

REPORT INFORMATION
  Report Type: 
  Country: None (occurrence: None)
  Receive Date: 20060602
  Receipt Date: 20060509
  Transmission Date: 20061013
  Serious: Yes (Life-Threatening, Hospitalization, Disabling)
  Sender: FDA-Public Use
  Company Number: JP-MERCK-0605USA01946

PATIENT
  Age: 61 Year
  Sex: Female
  Weight: 55 kg

DRUGS (4)
  1. SINGULAIR [Suspect]
     Indication: ASTHMA
     Route: 048
     Dates: start: 20060101, end: 20060301
  2. THEO-DUR [Concomitant]
     Indication: ASTHMA
     Route: 048
     Dates: start: 20060101, end: 20060301
  3. CLEANAL [Concomitant]
     Route: 048
     Dates: start: 20060101, end: 20060301
  4. MUCOSOLVAN [Concomitant]
     Route: 048
     Dates: start: 20060101, end: 20060301

REACTIONS (1)
  - ALLERGIC GRANULOMATOUS ANGIITIS [None]
